FAERS Safety Report 8128222-7 (Version None)
Quarter: 2012Q1

REPORT INFORMATION
  Report Type: 
  Country: None (occurrence: None)
  Receive Date: 20120210
  Receipt Date: 20120131
  Transmission Date: 20120608
  Serious: Yes (Hospitalization, Other)
  Sender: FDA-Public Use
  Company Number: US-ABBOTT-12P-163-0899887-00

PATIENT
  Sex: Male
  Weight: 79.45 kg

DRUGS (7)
  1. NIASPAN [Suspect]
     Indication: HIGH DENSITY LIPOPROTEIN DECREASED
     Dates: start: 20101101, end: 20110501
  2. NIASPAN [Suspect]
     Dates: start: 20101101, end: 20110501
  3. COREG [Concomitant]
     Indication: PRODUCT USED FOR UNKNOWN INDICATION
  4. ELANAPRIL [Concomitant]
     Indication: PRODUCT USED FOR UNKNOWN INDICATION
  5. VYTORIN [Concomitant]
     Indication: PRODUCT USED FOR UNKNOWN INDICATION
  6. ASPIRIN [Concomitant]
     Indication: PRODUCT USED FOR UNKNOWN INDICATION
  7. PLAVIX [Concomitant]
     Indication: PRODUCT USED FOR UNKNOWN INDICATION

REACTIONS (11)
  - VOMITING [None]
  - CORONARY ARTERY OCCLUSION [None]
  - NAUSEA [None]
  - FLUSHING [None]
  - LOSS OF CONSCIOUSNESS [None]
  - CONVULSION [None]
  - CARDIAC OPERATION [None]
  - SLEEP DISORDER [None]
  - STENT PLACEMENT [None]
  - MYOCARDIAL INFARCTION [None]
  - CARDIAC STRESS TEST ABNORMAL [None]
